FAERS Safety Report 11164298 (Version 2)
Quarter: 2015Q2

REPORT INFORMATION
  Report Type: Spontaneous
  Country: BR (occurrence: BR)
  Receive Date: 20150604
  Receipt Date: 20150619
  Transmission Date: 20150821
  Serious: Yes (Other)
  Sender: FDA-Public Use
  Company Number: BR-PFIZER INC-2015184609

PATIENT
  Age: 51 Year
  Sex: Female
  Weight: 80 kg

DRUGS (3)
  1. PRISTIQ EXTENDED RELEASE [Suspect]
     Active Substance: DESVENLAFAXINE SUCCINATE
     Indication: DEPRESSION
     Dosage: 1 TABLET OF 100 MG PLUS 1 TABLET OF 50 MG (150 MG), DAILY
     Route: 048
     Dates: start: 2012
  2. PRISTIQ EXTENDED RELEASE [Suspect]
     Active Substance: DESVENLAFAXINE SUCCINATE
     Dosage: 1 TABLET OF 100 MG PLUS 1 TABLET OF 50 MG (150 MG), DAILY
     Route: 048
     Dates: start: 2012
  3. WELLBUTRIN [Concomitant]
     Active Substance: BUPROPION HYDROCHLORIDE
     Indication: DEPRESSION
     Dosage: UNK
     Dates: start: 2012

REACTIONS (5)
  - Drug withdrawal syndrome [Unknown]
  - Suicide attempt [Unknown]
  - Panic attack [Unknown]
  - Crying [Unknown]
  - Anxiety [Unknown]
